FAERS Safety Report 8031621-5 (Version None)
Quarter: 2012Q1

REPORT INFORMATION
  Report Type: 
  Country: None (occurrence: None)
  Receive Date: 20120109
  Receipt Date: 20120104
  Transmission Date: 20120608
  Serious: Yes (Hospitalization)
  Sender: FDA-Public Use
  Company Number: PHHY2011DK96813

PATIENT
  Sex: Female
  Weight: 70 kg

DRUGS (2)
  1. CITALOPRAM HYDROBROMIDE [Suspect]
     Indication: DEPRESSION
     Dosage: 40 MG, QD
     Route: 048
     Dates: start: 20100501
  2. LAMICTAL [Concomitant]
     Indication: EPILEPSY

REACTIONS (4)
  - FOETAL DEATH [None]
  - PLACENTAL DISORDER [None]
  - PLACENTAL INFARCTION [None]
  - MATERNAL EXPOSURE DURING PREGNANCY [None]
